FAERS Safety Report 23169616 (Version 1)
Quarter: 2023Q4

REPORT INFORMATION
  Report Type: Spontaneous
  Country: US (occurrence: US)
  Receive Date: 20231110
  Receipt Date: 20231110
  Transmission Date: 20240109
  Serious: No
  Sender: FDA-Public Use
  Company Number: US-TEVA-2023-US-2940396

PATIENT
  Age: 39 Year
  Sex: Male

DRUGS (2)
  1. PIMECROLIMUS [Suspect]
     Active Substance: PIMECROLIMUS
     Indication: Eczema
     Route: 065
     Dates: end: 2023
  2. CUREL ADVANCED CERAMIDE THERAPY [Concomitant]
     Active Substance: PETROLATUM
     Indication: Product used for unknown indication
     Route: 065
     Dates: end: 20231020

REACTIONS (2)
  - Melanocytic naevus [Unknown]
  - Off label use [Unknown]

NARRATIVE: CASE EVENT DATE: 20230101
